FAERS Safety Report 8269375-X (Version None)
Quarter: 2012Q2

REPORT INFORMATION
  Report Type: 
  Country: None (occurrence: None)
  Receive Date: 20120409
  Receipt Date: 20120327
  Transmission Date: 20120825
  Serious: Yes (Hospitalization)
  Sender: FDA-Public Use
  Company Number: CH-ROCHE-1054133

PATIENT
  Age: 59 Year
  Sex: Male
  Weight: 71 kg

DRUGS (2)
  1. BENDAMUSTINE [Suspect]
     Indication: CHRONIC LYMPHOCYTIC LEUKAEMIA
     Dosage: DAST DOSE PRIOR TO SAE 19/AUG/2011
     Dates: start: 20110330
  2. MABTHERA [Suspect]
     Indication: CHRONIC LYMPHOCYTIC LEUKAEMIA
     Dosage: LAST DOSE PRIOR TO SAE 18/AUG/2011
     Dates: start: 20110329

REACTIONS (1)
  - PERIPHERAL MOTOR NEUROPATHY [None]
